FAERS Safety Report 19688993 (Version 1)
Quarter: 2021Q3

REPORT INFORMATION
  Report Type: Spontaneous
  Country: US (occurrence: US)
  Receive Date: 20210811
  Receipt Date: 20210811
  Transmission Date: 20211014
  Serious: No
  Sender: FDA-Public Use
  Company Number: US-SA-2021SA263270

PATIENT
  Age: 61 Year
  Sex: Female

DRUGS (11)
  1. CUVITRU [Concomitant]
     Active Substance: HUMAN IMMUNOGLOBULIN G
  2. CLARITIN?D NOS [Concomitant]
     Active Substance: LORATADINE\PSEUDOEPHEDRINE SULFATE
  3. CROMOLYN SODIUM. [Concomitant]
     Active Substance: CROMOLYN SODIUM
     Route: 048
  4. DUPIXENT [Suspect]
     Active Substance: DUPILUMAB
     Indication: IMMUNODEFICIENCY COMMON VARIABLE
     Dosage: 300 MG, QOW
     Route: 058
  5. NUCALA [Concomitant]
     Active Substance: MEPOLIZUMAB
  6. ACETAMINOPHEN. [Concomitant]
     Active Substance: ACETAMINOPHEN
  7. LEVOTHYROXINE SODIUM. [Concomitant]
     Active Substance: LEVOTHYROXINE SODIUM
  8. DIPHENHYDRAMINE. [Concomitant]
     Active Substance: DIPHENHYDRAMINE
  9. CLARITHROMYCIN. [Concomitant]
     Active Substance: CLARITHROMYCIN
  10. EPINEPHRINE. [Concomitant]
     Active Substance: EPINEPHRINE
  11. DYMISTA [Concomitant]
     Active Substance: AZELASTINE HYDROCHLORIDE\FLUTICASONE PROPIONATE

REACTIONS (6)
  - Laryngitis [Unknown]
  - Nausea [Unknown]
  - Infusion related reaction [Unknown]
  - Pharyngitis [Unknown]
  - Sinusitis [Unknown]
  - Product use in unapproved indication [Unknown]
